FAERS Safety Report 6267624-0 (Version None)
Quarter: 2009Q3

REPORT INFORMATION
  Report Type: 
  Country: None (occurrence: None)
  Receive Date: 20090714
  Receipt Date: 20090706
  Transmission Date: 20100115
  Serious: Yes (Hospitalization)
  Sender: FDA-Public Use
  Company Number: BR-PFIZER INC-2009236258

PATIENT
  Age: 69 Year

DRUGS (4)
  1. ATORVASTATIN CALCIUM [Suspect]
     Indication: BLOOD CHOLESTEROL INCREASED
     Dosage: 10 MG, 1X/DAY
     Dates: start: 20060101
  2. CHAMPIX [Suspect]
     Dosage: 1 MG, 1X/DAY
     Dates: start: 20090629
  3. METFORMIN [Concomitant]
     Indication: DIABETES MELLITUS
     Dosage: UNK
     Dates: start: 20070101, end: 20090601
  4. GLYBURIDE [Concomitant]
     Indication: DIABETES MELLITUS
     Dosage: UNK
     Dates: start: 20040101, end: 20090601

REACTIONS (4)
  - INFARCTION [None]
  - INITIAL INSOMNIA [None]
  - INSOMNIA [None]
  - NAUSEA [None]
